FAERS Safety Report 4682482-3 (Version None)
Quarter: 2005Q2

REPORT INFORMATION
  Report Type: 
  Country: None (occurrence: None)
  Receive Date: 20050606
  Receipt Date: 20050531
  Transmission Date: 20051028
  Serious: Yes (Other)
  Sender: FDA-Public Use
  Company Number: BR-ROCHE-406426

PATIENT
  Age: 45 Year
  Sex: Female
  Weight: 112 kg

DRUGS (2)
  1. XENICAL [Suspect]
     Indication: WEIGHT CONTROL
     Route: 048
     Dates: start: 20050515
  2. VITAMIN B-12 [Concomitant]

REACTIONS (2)
  - CONSTIPATION [None]
  - HAEMATOCHEZIA [None]
